FAERS Safety Report 7289210-6 (Version None)
Quarter: 2011Q1

REPORT INFORMATION
  Report Type: 
  Country: None (occurrence: None)
  Receive Date: 20110211
  Receipt Date: 20110202
  Transmission Date: 20110831
  Serious: Yes (Other)
  Sender: FDA-Public Use
  Company Number: GB-ELI_LILLY_AND_COMPANY-GB201102000835

PATIENT
  Sex: Male

DRUGS (1)
  1. HUMULIN 70/30 [Suspect]

REACTIONS (3)
  - HYPERSENSITIVITY [None]
  - CHEST PAIN [None]
  - VISUAL IMPAIRMENT [None]
